FAERS Safety Report 8816321 (Version 1)
Quarter: 2012Q4

REPORT INFORMATION
  Report Type: Spontaneous
  Country: US (occurrence: None)
  Receive Date: 20120927
  Receipt Date: 20120927
  Transmission Date: 20130627
  Serious: No
  Sender: FDA-Public Use
  Company Number: None

PATIENT
  Age: 50 Year
  Sex: Male
  Weight: 160.8 kg

DRUGS (7)
  1. OXALIPLATIN [Suspect]
     Indication: CHEMOTHERAPY/RECTOSIGMOID CANCER
     Dosage: 174.85mL  rate: 2.69 ml/min  IV
     Route: 042
     Dates: start: 20120112
  2. ZOLPIDEM [Concomitant]
  3. PROCHLORPERAZINE [Concomitant]
  4. ONDANSETRON [Concomitant]
  5. OMEPRAZOLE [Concomitant]
  6. METHYLPHENIDATE [Concomitant]
  7. DIAZEPAM [Concomitant]

REACTIONS (4)
  - Musculoskeletal pain [None]
  - Swelling [None]
  - Extravasation [None]
  - Phlebitis [None]
